FAERS Safety Report 6860859-5 (Version None)
Quarter: 2010Q3

REPORT INFORMATION
  Report Type: 
  Country: None (occurrence: None)
  Receive Date: 20100720
  Receipt Date: 20100714
  Transmission Date: 20110219
  Serious: Yes (Other)
  Sender: FDA-Public Use
  Company Number: US-BRISTOL-MYERS SQUIBB COMPANY-15192792

PATIENT
  Age: 77 Year
  Sex: Male
  Weight: 86 kg

DRUGS (1)
  1. IXEMPRA KIT [Suspect]
     Indication: PROSTATE CANCER
     Dosage: 20MG/M2 IV OVERE 1HR ON DAYS 1, 8, 15;CYCLE - 28DAYS;TOTAL NO OF COURSE-7;COURSE ON EVENTOCCUR-5
     Route: 042
     Dates: start: 20050624

REACTIONS (1)
  - TREMOR [None]
